FAERS Safety Report 8954695 (Version 1)
Quarter: 2012Q4

REPORT INFORMATION
  Report Type: 
  Country: US (occurrence: US)
  Receive Date: 20121207
  Receipt Date: 20121207
  Transmission Date: 20130627
  Serious: No
  Sender: FDA-Public Use
  Company Number: US-ASTRAZENECA-2012SE87984

PATIENT
  Age: 43 Year
  Sex: Female
  Weight: 47.6 kg

DRUGS (6)
  1. SEROQUEL [Suspect]
     Indication: ANXIETY
     Route: 048
     Dates: start: 2006, end: 2011
  2. SEROQUEL [Suspect]
     Indication: ANXIETY
     Route: 048
     Dates: start: 2011, end: 201210
  3. SEROQUEL [Suspect]
     Indication: ANXIETY
     Route: 048
     Dates: start: 201210
  4. LAMICTAL [Concomitant]
     Indication: BIPOLAR DISORDER
  5. LORAZEPAM [Concomitant]
     Indication: ANXIETY
  6. THYROID MEDICATION [Concomitant]
     Indication: THYROID DISORDER

REACTIONS (6)
  - Drug withdrawal syndrome [Unknown]
  - Anxiety [Unknown]
  - Depression [Unknown]
  - Malaise [Unknown]
  - Off label use [Unknown]
  - Drug dose omission [Unknown]
